FAERS Safety Report 20898773 (Version 2)
Quarter: 2022Q3

REPORT INFORMATION
  Report Type: Spontaneous
  Country: US (occurrence: US)
  Receive Date: 20220601
  Receipt Date: 20220719
  Transmission Date: 20221027
  Serious: No
  Sender: FDA-Public Use
  Company Number: US-GLAXOSMITHKLINE-US2022085017

PATIENT
  Age: 61 Year
  Sex: Male

DRUGS (5)
  1. ADVAIR DISKUS [Suspect]
     Active Substance: FLUTICASONE PROPIONATE\SALMETEROL XINAFOATE
     Indication: Product used for unknown indication
     Dosage: UNK, 100/50 UG
     Dates: end: 20220501
  2. OMEPRAZOLE [Suspect]
     Active Substance: OMEPRAZOLE
     Indication: Product used for unknown indication
     Dosage: UNK
  3. ACETAMINOPHEN [Suspect]
     Active Substance: ACETAMINOPHEN
     Indication: Pain
     Dosage: UNK
  4. TYLENOL [Suspect]
     Active Substance: ACETAMINOPHEN
     Indication: Product used for unknown indication
     Dosage: UNK
  5. MILK OF MAGNESIA [Suspect]
     Active Substance: MAGNESIUM HYDROXIDE
     Indication: Product used for unknown indication
     Dosage: UNK

REACTIONS (13)
  - Fatigue [Unknown]
  - Loss of personal independence in daily activities [Unknown]
  - Heart rate increased [Unknown]
  - Mitral valve prolapse [Unknown]
  - Bundle branch block [Unknown]
  - Pain [Unknown]
  - Dyspnoea [Unknown]
  - Irritability [Unknown]
  - Diarrhoea [Unknown]
  - Chest pain [Unknown]
  - Blood pressure increased [Unknown]
  - Asthma [Unknown]
  - Product dose omission issue [Unknown]

NARRATIVE: CASE EVENT DATE: 20220527
